FAERS Safety Report 6608012-4 (Version None)
Quarter: 2010Q1

REPORT INFORMATION
  Report Type: 
  Country: None (occurrence: None)
  Receive Date: 20100226
  Receipt Date: 20100226
  Transmission Date: 20100710
  Serious: No
  Sender: FDA-Public Use
  Company Number: None

PATIENT
  Age: 20 Year
  Sex: Male
  Weight: 67.586 kg

DRUGS (7)
  1. RISPERIDONE [Suspect]
     Dosage: 8MG DAY PO
     Route: 048
  2. ACETAMINOPHEN [Concomitant]
  3. MOM [Concomitant]
  4. HALOPERIDOL IMR [Concomitant]
  5. AURALGAN [Concomitant]
  6. BENZTROPINE MESYLATE [Concomitant]
  7. TOLNAFTATE [Concomitant]

REACTIONS (1)
  - SWOLLEN TONGUE [None]
